FAERS Safety Report 9586483 (Version 2)
Quarter: 2013Q4

REPORT INFORMATION
  Report Type: Report from Study
  Country: US (occurrence: US)
  Receive Date: 20131003
  Receipt Date: 20131126
  Transmission Date: 20140711
  Serious: Yes (Hospitalization)
  Sender: FDA-Public Use
  Company Number: US-NAPPMUNDI-USA-2013-0106930

PATIENT
  Age: 46 Year
  Sex: Male
  Weight: 82.86 kg

DRUGS (4)
  1. OXYCONTIN (NDA 22-272) [Suspect]
     Indication: SPINAL OSTEOARTHRITIS
     Dosage: 40 MG, 2 TABS IN QAM AND 1 TAB QPM
     Route: 048
  2. OXYCONTIN (NDA 22-272) [Suspect]
     Indication: RHEUMATOID ARTHRITIS
  3. OXYCONTIN (NDA 22-272) [Suspect]
     Indication: ANKYLOSING SPONDYLITIS
  4. OXYCODONE HYDROCHLORIDE (SIMILAR TO NDA 22-272) [Concomitant]
     Indication: BREAKTHROUGH PAIN
     Dosage: 30 MG, Q6H
     Route: 048

REACTIONS (2)
  - Road traffic accident [Recovered/Resolved]
  - Ankle fracture [Recovered/Resolved]
